FAERS Safety Report 18701581 (Version 1)
Quarter: 2021Q1

REPORT INFORMATION
  Report Type: Spontaneous
  Country: US (occurrence: US)
  Receive Date: 20210105
  Receipt Date: 20210105
  Transmission Date: 20210419
  Serious: Yes (Other)
  Sender: FDA-Public Use
  Company Number: None

PATIENT
  Age: 67 Year
  Sex: Male

DRUGS (1)
  1. DEPO?TESTOSTERONE [Suspect]
     Active Substance: TESTOSTERONE CYPIONATE
     Dosage: ?          OTHER FREQUENCY:EVERY 2 WEEKS;?
     Route: 030

REACTIONS (4)
  - Back pain [None]
  - Weight decreased [None]
  - Hepatic pain [None]
  - Diarrhoea [None]

NARRATIVE: CASE EVENT DATE: 20210104
